FAERS Safety Report 12376386 (Version 2)
Quarter: 2016Q2

REPORT INFORMATION
  Report Type: Spontaneous
  Country: CL (occurrence: CL)
  Receive Date: 20160517
  Receipt Date: 20160518
  Transmission Date: 20160815
  Serious: Yes (Hospitalization)
  Sender: FDA-Public Use
  Company Number: CL-ASTRAZENECA-2016SE50660

PATIENT
  Age: 943 Month
  Sex: Male
  Weight: 83 kg

DRUGS (5)
  1. ATORVASTATIN [Concomitant]
     Active Substance: ATORVASTATIN
  2. ASPIRINE [Concomitant]
     Active Substance: ASPIRIN
     Dosage: 1 TABLET/DAY
  3. BRILINTA [Suspect]
     Active Substance: TICAGRELOR
     Indication: SURGERY
     Route: 048
     Dates: start: 201601
  4. DUODART [Concomitant]
     Active Substance: DUTASTERIDE\TAMSULOSIN
  5. INSULINE [Concomitant]
     Active Substance: INSULIN NOS

REACTIONS (1)
  - Renal disorder [Unknown]

NARRATIVE: CASE EVENT DATE: 201605
